FAERS Safety Report 10705939 (Version 1)
Quarter: 2015Q1

REPORT INFORMATION
  Report Type: Report from Study
  Country: US (occurrence: US)
  Receive Date: 20150113
  Receipt Date: 20150113
  Transmission Date: 20150721
  Serious: Yes (Other)
  Sender: FDA-Public Use
  Company Number: US-AMGEN-USASL2015001462

PATIENT
  Sex: Female
  Weight: 99.77 kg

DRUGS (1)
  1. ENBREL [Suspect]
     Active Substance: ETANERCEPT
     Indication: RHEUMATOID ARTHRITIS
     Dosage: 50 MG, QWK
     Route: 058

REACTIONS (7)
  - Chronic obstructive pulmonary disease [Unknown]
  - Vulval cancer [Unknown]
  - Brain neoplasm benign [Unknown]
  - Injection site pain [Unknown]
  - Ageusia [Unknown]
  - Anosmia [Unknown]
  - Influenza [Unknown]

NARRATIVE: CASE EVENT DATE: 2011
